FAERS Safety Report 25244858 (Version 1)
Quarter: 2025Q2

REPORT INFORMATION
  Report Type: Spontaneous
  Country: SI (occurrence: SI)
  Receive Date: 20250428
  Receipt Date: 20250428
  Transmission Date: 20250716
  Serious: Yes (Life-Threatening, Hospitalization)
  Sender: BOEHRINGER INGELHEIM
  Company Number: None

PATIENT
  Age: 86 Year
  Sex: Female

DRUGS (13)
  1. GLIQUIDONE [Suspect]
     Active Substance: GLIQUIDONE
     Indication: Type 2 diabetes mellitus
     Dates: start: 20250227, end: 20250415
  2. LINAGLIPTIN [Suspect]
     Active Substance: LINAGLIPTIN
     Indication: Type 2 diabetes mellitus
     Dates: start: 20250227, end: 20250415
  3. ASPIRIN [Concomitant]
     Active Substance: ASPIRIN
     Indication: Product used for unknown indication
  4. Vitamin D3 Krka 7 000 UI [Concomitant]
     Indication: Product used for unknown indication
     Dosage: STRENGHT: 7000 I.E.
  5. Exelon 13.3 MG/24 H [Concomitant]
     Indication: Dementia
     Dosage: STRENGHT: 13,3 MG/24 H ?DOSE: 1X1
  6. Atoris 20 MG [Concomitant]
     Indication: Product used for unknown indication
  7. BISOPROLOL FUMARATE [Concomitant]
     Active Substance: BISOPROLOL FUMARATE
     Indication: Product used for unknown indication
  8. CIPRALEX [Concomitant]
     Active Substance: ESCITALOPRAM OXALATE
     Indication: Product used for unknown indication
  9. Mirzaten 30 MG [Concomitant]
     Indication: Product used for unknown indication
  10. ADALAT OROS 30 MG [Concomitant]
     Indication: Product used for unknown indication
  11. Hidrokortizon Altamedics 10 MG [Concomitant]
     Indication: Product used for unknown indication
  12. MICARDIS [Concomitant]
     Active Substance: TELMISARTAN
     Indication: Product used for unknown indication
  13. MicardisPlus 40 MG/12,5 MG [Concomitant]
     Indication: Product used for unknown indication
     Dosage: STRENGHT: 40 MG/12,5 MG

REACTIONS (1)
  - Hypoglycaemia [Recovering/Resolving]

NARRATIVE: CASE EVENT DATE: 20250415
